FAERS Safety Report 7150104-8 (Version None)
Quarter: 2010Q4

REPORT INFORMATION
  Report Type: 
  Country: None (occurrence: None)
  Receive Date: 20101210
  Receipt Date: 20101206
  Transmission Date: 20110411
  Serious: Yes (Death)
  Sender: FDA-Public Use
  Company Number: US-AMGEN-USASP2010007967

PATIENT

DRUGS (3)
  1. NPLATE [Suspect]
     Indication: IDIOPATHIC THROMBOCYTOPENIC PURPURA
     Dosage: UNK
     Dates: start: 20101020
  2. NPLATE [Suspect]
     Dates: start: 20101020
  3. PREDNISONE [Concomitant]
     Dosage: UNK
     Dates: start: 20080101

REACTIONS (1)
  - DEATH [None]
